FAERS Safety Report 5642914-0 (Version None)
Quarter: 2008Q1

REPORT INFORMATION
  Report Type: 
  Country: None (occurrence: None)
  Receive Date: 20080228
  Receipt Date: 20080214
  Transmission Date: 20080703
  Serious: Yes (Hospitalization)
  Sender: FDA-Public Use
  Company Number: US-ROCHE-547523

PATIENT
  Age: 79 Year
  Sex: Female

DRUGS (1)
  1. BONIVA [Suspect]
     Indication: OSTEOPOROSIS
     Route: 048
     Dates: start: 20071015, end: 20071015

REACTIONS (6)
  - ELECTROLYTE IMBALANCE [None]
  - IMMUNOSUPPRESSION [None]
  - INSOMNIA [None]
  - ORAL INTAKE REDUCED [None]
  - STOMATITIS [None]
  - WEIGHT DECREASED [None]
